FAERS Safety Report 12232401 (Version 1)
Quarter: 2016Q2

REPORT INFORMATION
  Report Type: Report from Study
  Country: BR (occurrence: BR)
  Receive Date: 20160401
  Receipt Date: 20160401
  Transmission Date: 20160815
  Serious: Yes (Hospitalization)
  Sender: FDA-Public Use
  Company Number: PHHY2016BR042895

PATIENT
  Sex: Female
  Weight: 68 kg

DRUGS (2)
  1. EXELON PATCH [Suspect]
     Active Substance: RIVASTIGMINE
     Dosage: PATCH 10 (CM2)
     Route: 062
  2. EXELON PATCH [Suspect]
     Active Substance: RIVASTIGMINE
     Indication: MEMORY IMPAIRMENT
     Dosage: PATCH 10 (CM2)
     Route: 062

REACTIONS (4)
  - Cerebrovascular accident [Unknown]
  - Aphasia [Unknown]
  - Amnesia [Unknown]
  - Malaise [Unknown]
